FAERS Safety Report 8952615 (Version 1)
Quarter: 2012Q4

REPORT INFORMATION
  Report Type: 
  Country: US (occurrence: US)
  Receive Date: 20121205
  Receipt Date: 20121205
  Transmission Date: 20130627
  Serious: No
  Sender: FDA-Public Use
  Company Number: US-009507513-1212USA001611

PATIENT
  Age: 33 Year
  Sex: Male

DRUGS (2)
  1. CLARITIN-D 24 HOUR [Suspect]
     Indication: HYPERSENSITIVITY
     Dosage: 10 mg, qpm
     Route: 048
     Dates: start: 20121124
  2. CLARITIN-D 24 HOUR [Suspect]
     Dosage: 10 mg, qam
     Route: 048
     Dates: start: 20121125

REACTIONS (2)
  - Overdose [Unknown]
  - No adverse event [Unknown]
